FAERS Safety Report 7329292-6 (Version None)
Quarter: 2011Q1

REPORT INFORMATION
  Report Type: 
  Country: None (occurrence: None)
  Receive Date: 20110303
  Receipt Date: 20110221
  Transmission Date: 20110831
  Serious: Yes (Other)
  Sender: FDA-Public Use
  Company Number: B0701442A

PATIENT
  Age: 38 Year
  Sex: Male
  Weight: 65 kg

DRUGS (4)
  1. LAMIVUDINE-HIV [Concomitant]
     Indication: ANTIRETROVIRAL THERAPY
     Route: 065
     Dates: start: 20101014
  2. KALETRA [Concomitant]
     Indication: ANTIRETROVIRAL THERAPY
     Dates: start: 20101014
  3. ZIAGEN [Suspect]
     Indication: ACQUIRED IMMUNODEFICIENCY SYNDROME
     Route: 065
     Dates: end: 20101124
  4. SEPTRIN [Concomitant]
     Route: 065
     Dates: start: 20101014

REACTIONS (1)
  - SUICIDAL IDEATION [None]
